FAERS Safety Report 8663062 (Version 4)
Quarter: 2012Q4

REPORT INFORMATION
  Report Type: Report from Study
  Country: BE (occurrence: BE)
  Receive Date: 20120713
  Receipt Date: 20121025
  Transmission Date: 20130627
  Serious: Yes (Death, Hospitalization)
  Sender: FDA-Public Use
  Company Number: BE-AMGEN-BELCT2012042468

PATIENT
  Age: 75 Year
  Sex: Male
  Weight: 84 kg

DRUGS (6)
  1. ETANERCEPT [Suspect]
     Indication: PSORIASIS
     Dosage: 50 mg, weekly
     Route: 058
     Dates: start: 20120301, end: 20120629
  2. NEORAL [Concomitant]
     Dosage: UNK
     Dates: start: 20111010, end: 20120307
  3. RYTMONORM [Concomitant]
     Indication: ATRIAL FIBRILLATION
     Dosage: UNK
     Route: 048
  4. ASAFLOW [Concomitant]
     Indication: ATRIAL FIBRILLATION
     Dosage: UNK
     Route: 048
  5. LANOXIN [Concomitant]
     Indication: ATRIAL FIBRILLATION
     Dosage: UNK
  6. PANTOPRAZOLE [Concomitant]
     Dosage: UNK
     Route: 048

REACTIONS (1)
  - Metastases to liver [Fatal]
